FAERS Safety Report 10401087 (Version 1)
Quarter: 2014Q3

REPORT INFORMATION
  Report Type: Report from Study
  Country: US (occurrence: US)
  Receive Date: 20140822
  Receipt Date: 20140822
  Transmission Date: 20150326
  Serious: Yes (Other)
  Sender: FDA-Public Use
  Company Number: US-ROCHE-1451988

PATIENT
  Age: 71 Year
  Sex: Male

DRUGS (2)
  1. RITUXAN [Suspect]
     Active Substance: RITUXIMAB
     Indication: MICROSCOPIC POLYANGIITIS
  2. RITUXAN [Suspect]
     Active Substance: RITUXIMAB
     Indication: GRANULOMATOSIS WITH POLYANGIITIS
     Route: 042

REACTIONS (8)
  - Haematuria [Unknown]
  - Skin ulcer [Unknown]
  - Headache [Unknown]
  - Infusion site reaction [Unknown]
  - Nausea [Unknown]
  - Granulomatosis with polyangiitis [Unknown]
  - Rash [Unknown]
  - Glomerulonephritis [Unknown]
